FAERS Safety Report 6007432-9 (Version None)
Quarter: 2008Q4

REPORT INFORMATION
  Report Type: 
  Country: None (occurrence: None)
  Receive Date: 20081217
  Receipt Date: 20080416
  Transmission Date: 20090506
  Serious: No
  Sender: FDA-Public Use
  Company Number: US-ASTRAZENECA-2008UW07841

PATIENT
  Age: 54 Year
  Sex: Female

DRUGS (2)
  1. CRESTOR [Suspect]
     Route: 048
  2. ADVOCARE (HERBAL) [Concomitant]

REACTIONS (3)
  - HOT FLUSH [None]
  - MOOD ALTERED [None]
  - NIGHT SWEATS [None]
